FAERS Safety Report 6130341-1 (Version None)
Quarter: 2009Q1

REPORT INFORMATION
  Report Type: 
  Country: None (occurrence: None)
  Receive Date: 20090324
  Receipt Date: 20090318
  Transmission Date: 20090719
  Serious: No
  Sender: FDA-Public Use
  Company Number: US-B.I. PHARMACEUTICALS,INC./RIDGEFIELD-2009-BP-03408BP

PATIENT
  Sex: Female

DRUGS (7)
  1. SPIRIVA [Suspect]
     Indication: CHRONIC OBSTRUCTIVE PULMONARY DISEASE
     Dosage: 18MCG
     Route: 055
     Dates: start: 20050101
  2. SPIRIVA [Suspect]
     Indication: EMPHYSEMA
  3. ALBUTEROL [Concomitant]
     Indication: CHRONIC OBSTRUCTIVE PULMONARY DISEASE
     Route: 055
  4. OXYCODONE HCL [Concomitant]
     Indication: BACK PAIN
     Route: 048
     Dates: start: 20040101
  5. BUTALBITAL APAP [Concomitant]
     Indication: BACK PAIN
     Route: 048
     Dates: start: 20040101
  6. SEROQUEL [Concomitant]
     Indication: BACK PAIN
     Dosage: 300MG
     Route: 048
  7. NEURONTIN [Concomitant]
     Indication: BACK PAIN
     Dosage: 900MG
     Route: 048
     Dates: start: 20040101

REACTIONS (1)
  - OROPHARYNGEAL PAIN [None]
